FAERS Safety Report 7415911-2 (Version None)
Quarter: 2011Q2

REPORT INFORMATION
  Report Type: 
  Country: None (occurrence: None)
  Receive Date: 20110414
  Receipt Date: 20110407
  Transmission Date: 20111010
  Serious: Yes (Hospitalization)
  Sender: FDA-Public Use
  Company Number: JP-CEPHALON-2011001802

PATIENT
  Sex: Male
  Weight: 55 kg

DRUGS (14)
  1. BROTIZOLAM [Concomitant]
     Dates: start: 20110115
  2. BENDAMUSTINE HCL [Suspect]
     Route: 042
     Dates: start: 20110112, end: 20110112
  3. FAMOTIDINE [Concomitant]
     Dates: start: 20101224
  4. HEPARIN [Concomitant]
  5. PREDNISOLONE [Concomitant]
  6. DEXAMETHASONE [Concomitant]
     Dates: end: 20101221
  7. MAGNESIUM OXIDE [Concomitant]
     Dates: start: 20101216
  8. BUTENAFINE HYDROCHLORIDE [Concomitant]
     Dates: start: 20101227
  9. GRANISETRON HYDROCHLORIDE [Concomitant]
     Dates: start: 20101216, end: 20101217
  10. BENDAMUSTINE HCL [Suspect]
     Indication: MANTLE CELL LYMPHOMA RECURRENT
     Route: 042
     Dates: start: 20101216, end: 20101217
  11. SULFAMETHOXAZOLE AND TRIMETHOPRIM [Concomitant]
  12. OLOPATADINE [Concomitant]
  13. DIFLUPREDNATE [Concomitant]
     Dates: start: 20101217, end: 20101221
  14. LEVOFLOXACIN [Concomitant]
     Dates: start: 20110117

REACTIONS (6)
  - RASH [None]
  - BLOOD CREATININE INCREASED [None]
  - HYPERSENSITIVITY [None]
  - BLOOD AMYLASE INCREASED [None]
  - ALANINE AMINOTRANSFERASE INCREASED [None]
  - ASPARTATE AMINOTRANSFERASE INCREASED [None]
